FAERS Safety Report 14369292 (Version 1)
Quarter: 2018Q1

REPORT INFORMATION
  Report Type: Report from Study
  Country: None (occurrence: US)
  Receive Date: 20180109
  Receipt Date: 20180109
  Transmission Date: 20180509
  Serious: Yes (Death, Hospitalization)
  Sender: FDA-Public Use
  Company Number: US-ABBVIE-17K-163-2023452-00

PATIENT
  Age: 86 Year
  Sex: Female

DRUGS (1)
  1. HUMIRA [Suspect]
     Active Substance: ADALIMUMAB
     Indication: RHEUMATOID ARTHRITIS
     Route: 058
     Dates: start: 20160804, end: 20170927

REACTIONS (11)
  - Chest pain [Recovered/Resolved]
  - Spinal column injury [Recovering/Resolving]
  - Blood sodium decreased [Unknown]
  - Atrial fibrillation [Unknown]
  - Contusion [Unknown]
  - Rib fracture [Recovering/Resolving]
  - Fall [Recovered/Resolved]
  - Death [Fatal]
  - Fall [Unknown]
  - Fall [Recovering/Resolving]
  - Pain in extremity [Recovered/Resolved]

NARRATIVE: CASE EVENT DATE: 2017
